FAERS Safety Report 8595044-2 (Version None)
Quarter: 2012Q3

REPORT INFORMATION
  Report Type: 
  Country: None (occurrence: None)
  Receive Date: 20120815
  Receipt Date: 20120807
  Transmission Date: 20120928
  Serious: Yes (Other)
  Sender: FDA-Public Use
  Company Number: US-CELGENEUS-163-21880-12063391

PATIENT
  Sex: Female
  Weight: 68.1 kg

DRUGS (11)
  1. DIAZEPAM [Concomitant]
     Route: 065
  2. MEDROL PAK [Concomitant]
     Route: 065
  3. LORATADINE [Concomitant]
     Route: 065
  4. PLAQUENIL [Concomitant]
     Route: 065
  5. PREDNISONE TAB [Concomitant]
     Dosage: 10 MILLIGRAM
     Route: 065
  6. REVLIMID [Suspect]
     Dosage: 10 MILLIGRAM
     Route: 048
     Dates: start: 20120618
  7. CARVEDILOL [Concomitant]
     Route: 065
  8. HYDROCODONE BITARTRATE [Concomitant]
     Dosage: 5 MILLIGRAM
     Route: 065
  9. HUMALOG MIX 50/50 KWIKPEN [Concomitant]
     Route: 065
  10. IBUPROFEN [Concomitant]
     Route: 065
  11. SYNTHROID [Concomitant]
     Route: 065

REACTIONS (6)
  - PETECHIAE [None]
  - OEDEMA PERIPHERAL [None]
  - FALL [None]
  - LOSS OF CONSCIOUSNESS [None]
  - VASCULITIS [None]
  - DIZZINESS [None]
